FAERS Safety Report 6408354-1 (Version None)
Quarter: 2009Q4

REPORT INFORMATION
  Report Type: 
  Country: None (occurrence: None)
  Receive Date: 20091021
  Receipt Date: 20091012
  Transmission Date: 20100525
  Serious: Yes (Other)
  Sender: FDA-Public Use
  Company Number: PHEH2009US13561

PATIENT
  Sex: Female

DRUGS (2)
  1. LAMISIL [Suspect]
     Dosage: UNK
  2. ASPIRIN [Concomitant]

REACTIONS (5)
  - EMBOLISM [None]
  - FAECES DISCOLOURED [None]
  - IMPAIRED HEALING [None]
  - INJURY [None]
  - SKIN DISCOLOURATION [None]
